FAERS Safety Report 14109004 (Version 1)
Quarter: 2017Q4

REPORT INFORMATION
  Report Type: Spontaneous
  Country: US (occurrence: US)
  Receive Date: 20171019
  Receipt Date: 20171019
  Transmission Date: 20180321
  Serious: No
  Sender: FDA-Public Use
  Company Number: US-OTSUKA-2017_015516

PATIENT
  Sex: Male
  Weight: 79.36 kg

DRUGS (7)
  1. REXULTI [Suspect]
     Active Substance: BREXPIPRAZOLE
     Dosage: 1 MG, UNK
     Route: 065
  2. REXULTI [Suspect]
     Active Substance: BREXPIPRAZOLE
     Dosage: 1 MG, UNK
     Route: 065
  3. REXULTI [Suspect]
     Active Substance: BREXPIPRAZOLE
     Dosage: UNK (RESTARTED 0.5MG BY SPLITTING THE 1MG TABLETS, FOR EIGHT TO TEN DAYS)
     Route: 065
     Dates: start: 201706
  4. METFORMIN [Concomitant]
     Active Substance: METFORMIN HYDROCHLORIDE
     Indication: PRODUCT USED FOR UNKNOWN INDICATION
     Dosage: UNK
     Route: 065
  5. WELLBUTRIN [Concomitant]
     Active Substance: BUPROPION HYDROCHLORIDE
     Indication: PRODUCT USED FOR UNKNOWN INDICATION
     Dosage: UNK
     Route: 065
  6. ZOLOFT [Concomitant]
     Active Substance: SERTRALINE HYDROCHLORIDE
     Indication: PRODUCT USED FOR UNKNOWN INDICATION
     Dosage: UNK
     Route: 065
  7. REXULTI [Suspect]
     Active Substance: BREXPIPRAZOLE
     Indication: PRODUCT USED FOR UNKNOWN INDICATION
     Dosage: 0.5 MG, QD
     Route: 065
     Dates: start: 2016

REACTIONS (11)
  - Depression [Unknown]
  - Muscle twitching [Recovered/Resolved]
  - Muscle spasms [Unknown]
  - Insurance issue [Unknown]
  - Regressive behaviour [Unknown]
  - Condition aggravated [Unknown]
  - Wrong technique in product usage process [Unknown]
  - Feeling abnormal [Recovered/Resolved]
  - Restless legs syndrome [Unknown]
  - Nervousness [Unknown]
  - Therapeutic response unexpected [Unknown]

NARRATIVE: CASE EVENT DATE: 2016
